FAERS Safety Report 18001145 (Version 1)
Quarter: 2020Q3

REPORT INFORMATION
  Report Type: Report from Study
  Country: NL (occurrence: NL)
  Receive Date: 20200709
  Receipt Date: 20200709
  Transmission Date: 20201103
  Serious: Yes (Other)
  Sender: FDA-Public Use
  Company Number: NL-PFIZER INC-2020258934

PATIENT
  Age: 65 Year
  Sex: Male

DRUGS (9)
  1. VANCOMYCIN HCL [Suspect]
     Active Substance: VANCOMYCIN HYDROCHLORIDE
     Dosage: UNK
  2. VINCRISTINE [Concomitant]
     Active Substance: VINCRISTINE
     Indication: CHEMOTHERAPY
     Dosage: 2 MG, DAILY
     Dates: start: 20160112, end: 20160112
  3. COTRIMOXAZOLE [Suspect]
     Active Substance: SULFAMETHOXAZOLE\TRIMETHOPRIM
     Dosage: UNK
  4. PREDNISON [Concomitant]
     Active Substance: PREDNISONE
     Dosage: 500 MG, DAILY
     Dates: start: 20160112, end: 20160112
  5. CYCLOPHOSPHAMIDE. [Concomitant]
     Active Substance: CYCLOPHOSPHAMIDE
     Indication: CHEMOTHERAPY
     Dosage: 1447 MG, DAILY
     Dates: start: 20160112, end: 20160112
  6. RITUXIMAB. [Concomitant]
     Active Substance: RITUXIMAB
     Indication: CHEMOTHERAPY
     Dosage: 700 MG, DAILY
     Dates: start: 20160112, end: 20160112
  7. PIPERACILLIN/TAZOBACTAM [Suspect]
     Active Substance: PIPERACILLIN SODIUM\TAZOBACTAM SODIUM
     Dosage: UNK
  8. LONQUEX [Suspect]
     Active Substance: LIPEGFILGRASTIM
     Indication: PROPHYLAXIS
     Dosage: 6 MG, DAILY
     Route: 058
     Dates: start: 20160113
  9. DOXORUBICINE [DOXORUBICIN HYDROCHLORIDE] [Concomitant]
     Indication: CHEMOTHERAPY
     Dosage: 100 MG, DAILY
     Dates: start: 20160112, end: 20160112

REACTIONS (3)
  - Hypersensitivity [Recovered/Resolved]
  - Pneumonia [Recovered/Resolved]
  - Infective thrombosis [Recovered/Resolved]

NARRATIVE: CASE EVENT DATE: 20160209
